FAERS Safety Report 17258154 (Version 1)
Quarter: 2019Q4

REPORT INFORMATION
  Report Type: Spontaneous
  Country: US (occurrence: US)
  Receive Date: 20191217
  Receipt Date: 20191217
  Transmission Date: 20200122
  Serious: Yes (Hospitalization)
  Sender: FDA-Public Use
  Company Number: None

PATIENT
  Age: 63 Year
  Sex: Female

DRUGS (2)
  1. SAMSCA [Suspect]
     Active Substance: TOLVAPTAN
     Route: 048
     Dates: start: 20181129
  2. XIFAN [Concomitant]

REACTIONS (3)
  - Blood sodium decreased [None]
  - Therapy cessation [None]
  - Insurance issue [None]

NARRATIVE: CASE EVENT DATE: 20191016
